FAERS Safety Report 9721542 (Version 1)
Quarter: 2013Q4

REPORT INFORMATION
  Report Type: Report from Study
  Country: US (occurrence: US)
  Receive Date: 20131130
  Receipt Date: 20131130
  Transmission Date: 20140711
  Serious: No
  Sender: FDA-Public Use
  Company Number: PHEH2013US024903

PATIENT
  Sex: Female

DRUGS (8)
  1. TASIGNA [Suspect]
     Indication: CHRONIC MYELOID LEUKAEMIA
     Dosage: 300 MG, Q12H
     Route: 048
     Dates: start: 201010
  2. EFFIENT [Concomitant]
  3. FUROSEMIDE [Concomitant]
  4. LIPITOR [Concomitant]
  5. METORPOLOLTARTRAAT A [Concomitant]
  6. ALEVE [Concomitant]
  7. ADVIL//IBUPROFEN [Concomitant]
  8. LEVOTHYROXINE [Concomitant]

REACTIONS (2)
  - Epistaxis [Unknown]
  - Dry skin [Unknown]
